FAERS Safety Report 14338800 (Version 2)
Quarter: 2018Q1

REPORT INFORMATION
  Report Type: Other
  Country: US (occurrence: US)
  Receive Date: 20171229
  Receipt Date: 20180216
  Transmission Date: 20180509
  Serious: Yes (Death, Other)
  Sender: FDA-Public Use
  Company Number: US-INTERCEPT-PMOCA2017001692

PATIENT

DRUGS (2)
  1. OCALIVA [Suspect]
     Active Substance: OBETICHOLIC ACID
     Indication: PRIMARY BILIARY CHOLANGITIS
     Dosage: 5 MG, QD
     Route: 048
     Dates: start: 20161102
  2. URSODIOL. [Concomitant]
     Active Substance: URSODIOL

REACTIONS (4)
  - Hepatic function abnormal [Unknown]
  - Renal impairment [Unknown]
  - Drug ineffective [Unknown]
  - Death [Fatal]
